FAERS Safety Report 22104028 (Version 2)
Quarter: 2023Q2

REPORT INFORMATION
  Report Type: Spontaneous
  Country: US (occurrence: US)
  Receive Date: 20230316
  Receipt Date: 20230418
  Transmission Date: 20230721
  Serious: Yes (Hospitalization)
  Sender: FDA-Public Use
  Company Number: US-002147023-NVSC2023US054222

PATIENT
  Age: 59 Year
  Sex: Female

DRUGS (2)
  1. RECLAST [Suspect]
     Active Substance: ZOLEDRONIC ACID
     Indication: Osteoporosis
     Dosage: UNK
     Route: 065
     Dates: start: 20230125
  2. FENTANYL [Concomitant]
     Active Substance: FENTANYL
     Indication: Product used for unknown indication
     Dosage: 50 MCG/ML, ONCE/SINGLE
     Route: 065
     Dates: start: 20230126, end: 20230126

REACTIONS (24)
  - Crystal arthropathy [Unknown]
  - Varicose vein [Unknown]
  - Impaired driving ability [Unknown]
  - Deep vein thrombosis [Unknown]
  - Chondrocalcinosis [Unknown]
  - Skin laceration [Unknown]
  - Iron deficiency anaemia [Unknown]
  - Gait disturbance [Unknown]
  - Joint swelling [Unknown]
  - Pain [Unknown]
  - Arthralgia [Not Recovered/Not Resolved]
  - Pain in extremity [Unknown]
  - Paraesthesia [Unknown]
  - Myalgia [Unknown]
  - Muscle spasms [Unknown]
  - Back pain [Unknown]
  - Palpitations [Unknown]
  - Hepatic steatosis [Unknown]
  - Splenomegaly [Unknown]
  - Enteritis [Unknown]
  - Joint effusion [Unknown]
  - Muscular weakness [Unknown]
  - Hypoaesthesia [Unknown]
  - Constipation [Unknown]

NARRATIVE: CASE EVENT DATE: 20230125
